FAERS Safety Report 5010660-2 (Version None)
Quarter: 2006Q2

REPORT INFORMATION
  Report Type: 
  Country: None (occurrence: None)
  Receive Date: 20060525
  Receipt Date: 20060517
  Transmission Date: 20061013
  Serious: Yes (Other)
  Sender: FDA-Public Use
  Company Number: JP-JNJFOC-20060502344

PATIENT
  Age: 77 Year
  Sex: Female

DRUGS (3)
  1. RISPERDAL [Suspect]
     Indication: DRUG USE FOR UNKNOWN INDICATION
     Route: 048
     Dates: start: 20060412, end: 20060428
  2. TRAZODONE HCL [Concomitant]
     Route: 048
  3. IFENPRODIL TARTRATE [Concomitant]
     Route: 048

REACTIONS (1)
  - SUBILEUS [None]
